FAERS Safety Report 6081559-8 (Version None)
Quarter: 2009Q1

REPORT INFORMATION
  Report Type: 
  Country: None (occurrence: None)
  Receive Date: 20090218
  Receipt Date: 20090209
  Transmission Date: 20090719
  Serious: Yes (Hospitalization)
  Sender: FDA-Public Use
  Company Number: US-JNJFOC-20060307346

PATIENT
  Sex: Male
  Weight: 87.54 kg

DRUGS (4)
  1. RISPERDAL [Suspect]
     Indication: DRUG USE FOR UNKNOWN INDICATION
  2. ZYPREXA [Suspect]
     Indication: SCHIZOPHRENIA
     Route: 065
  3. WELLBUTRIN SR [Concomitant]
  4. HALOPERIDOL DECANOATE [Concomitant]
     Route: 050

REACTIONS (1)
  - TYPE 2 DIABETES MELLITUS [None]
